FAERS Safety Report 5965689-4 (Version None)
Quarter: 2008Q4

REPORT INFORMATION
  Report Type: 
  Country: None (occurrence: None)
  Receive Date: 20081125
  Receipt Date: 20081120
  Transmission Date: 20090506
  Serious: Yes (Other)
  Sender: FDA-Public Use
  Company Number: A0757444A

PATIENT
  Age: 62 Year
  Sex: Male

DRUGS (2)
  1. ZANTAC [Suspect]
     Dosage: 150MG AT NIGHT
     Route: 048
  2. ZANTAC [Suspect]
     Dosage: 150MG AT NIGHT
     Route: 048

REACTIONS (1)
  - ATRIAL FIBRILLATION [None]
